FAERS Safety Report 19952375 (Version 3)
Quarter: 2022Q1

REPORT INFORMATION
  Report Type: Spontaneous
  Country: IT (occurrence: IT)
  Receive Date: 20211013
  Receipt Date: 20220121
  Transmission Date: 20220424
  Serious: Yes (Other)
  Sender: FDA-Public Use
  Company Number: IT-ALIMERA SCIENCES LIMITED-IT-IL-2019-004515

PATIENT
  Age: 71 Year
  Sex: Male

DRUGS (2)
  1. ILUVIEN [Suspect]
     Active Substance: FLUOCINOLONE ACETONIDE
     Indication: Diabetic retinal oedema
     Dosage: 0.25 ?G, QD - RIGHT EYE
     Route: 031
     Dates: start: 20181016
  2. ILUVIEN [Suspect]
     Active Substance: FLUOCINOLONE ACETONIDE
     Dosage: 0.25 ?G, QD - LEFT EYE
     Route: 031
     Dates: start: 20190301

REACTIONS (8)
  - Trabeculoplasty [Recovered/Resolved]
  - Trabeculectomy [Recovered/Resolved]
  - Intraocular pressure increased [Recovered/Resolved]
  - Trabeculectomy [Recovered/Resolved]
  - Trabeculoplasty [Recovered/Resolved]
  - Intraocular pressure increased [Recovered/Resolved]
  - Intraocular pressure decreased [Unknown]
  - Intraocular pressure decreased [Unknown]

NARRATIVE: CASE EVENT DATE: 20190401
